FAERS Safety Report 24132463 (Version 1)
Quarter: 2024Q3

REPORT INFORMATION
  Report Type: Spontaneous
  Country: CN (occurrence: CN)
  Receive Date: 20240724
  Receipt Date: 20240724
  Transmission Date: 20241017
  Serious: Yes (Hospitalization)
  Sender: PAREXEL
  Company Number: CN-SHANGHAI JUNSHI BIOSCIENCES CO., LTD.-CN2024010645

PATIENT

DRUGS (4)
  1. TORIPALIMAB [Suspect]
     Active Substance: TORIPALIMAB
     Indication: Neoplasm malignant
     Dosage: 240 MG
     Route: 041
     Dates: start: 20240628, end: 20240628
  2. GEMCITABINE HYDROCHLORIDE [Suspect]
     Active Substance: GEMCITABINE HYDROCHLORIDE
     Indication: Neoplasm malignant
     Dosage: 1.3 G
     Route: 041
     Dates: start: 20240628, end: 20240628
  3. TRILACICLIB [Suspect]
     Active Substance: TRILACICLIB
     Indication: Neoplasm malignant
     Dosage: 400 MG
     Route: 041
     Dates: start: 20240628, end: 20240628
  4. CISPLATIN [Suspect]
     Active Substance: CISPLATIN
     Indication: Neoplasm malignant
     Dosage: 60 MG
     Route: 041
     Dates: start: 20240628, end: 20240628

REACTIONS (1)
  - Myelosuppression [Recovering/Resolving]
